FAERS Safety Report 17537904 (Version 1)
Quarter: 2020Q1

REPORT INFORMATION
  Report Type: Spontaneous
  Country: CN (occurrence: CN)
  Receive Date: 20200313
  Receipt Date: 20200313
  Transmission Date: 20200409
  Serious: Yes (Other)
  Sender: FDA-Public Use
  Company Number: CN-ASTRAZENECA-2020SE35708

PATIENT
  Age: 21185 Day
  Sex: Female
  Weight: 50 kg

DRUGS (3)
  1. OU DI JIA [Suspect]
     Active Substance: ALDIOXA
     Indication: GASTRITIS
     Route: 048
     Dates: start: 20200302, end: 20200303
  2. YUAN SHENG LI WEI [TRIMEBUTINE MALEATE] [Suspect]
     Active Substance: TRIMEBUTINE MALEATE
     Indication: GASTRITIS
     Route: 048
     Dates: start: 20200302, end: 20200303
  3. NEXIUM [Suspect]
     Active Substance: ESOMEPRAZOLE MAGNESIUM
     Indication: GASTRITIS
     Route: 048
     Dates: start: 20200302, end: 20200303

REACTIONS (4)
  - Chills [Not Recovered/Not Resolved]
  - Poor quality sleep [Not Recovered/Not Resolved]
  - Face oedema [Not Recovered/Not Resolved]
  - Gastroenteritis viral [Not Recovered/Not Resolved]

NARRATIVE: CASE EVENT DATE: 20200302
